FAERS Safety Report 22587878 (Version 3)
Quarter: 2023Q2

REPORT INFORMATION
  Report Type: Report from Study
  Country: MX (occurrence: MX)
  Receive Date: 20230612
  Receipt Date: 20230623
  Transmission Date: 20230722
  Serious: Yes (Hospitalization)
  Sender: FDA-Public Use
  Company Number: MX-002147023-NVSC2023MX099852

PATIENT
  Age: 31 Year
  Sex: Female
  Weight: 87 kg

DRUGS (2)
  1. OFATUMUMAB [Suspect]
     Active Substance: OFATUMUMAB
     Indication: Multiple sclerosis
     Dosage: 20 MG, QMO (20 MG (DURING THE FIRST MONTH OF TREATMENT, REQUIRES 3 INJECTIONS, FOLLOWED BY 1 PER MON
     Route: 058
     Dates: start: 20230421
  2. PREGABALIN [Concomitant]
     Active Substance: PREGABALIN
     Indication: Multiple sclerosis
     Dosage: 3 DOSAGE FORM, QD ((1 TABLET IN THE MORNING AND 2 TABLETS AT NIGHT))
     Route: 048
     Dates: start: 2021

REACTIONS (17)
  - Aphasia [Recovered/Resolved]
  - Somnolence [Not Recovered/Not Resolved]
  - Vertigo [Not Recovered/Not Resolved]
  - Malaise [Not Recovered/Not Resolved]
  - Migraine [Recovering/Resolving]
  - Gastrointestinal disorder [Unknown]
  - Burning sensation [Recovering/Resolving]
  - Dizziness [Recovering/Resolving]
  - Nausea [Recovering/Resolving]
  - Vitamin D decreased [Not Recovered/Not Resolved]
  - Pharyngeal swelling [Unknown]
  - Pyrexia [Not Recovered/Not Resolved]
  - Fatigue [Not Recovered/Not Resolved]
  - Headache [Recovering/Resolving]
  - Muscle rigidity [Recovering/Resolving]
  - Eye disorder [Recovered/Resolved]
  - Hypoaesthesia [Recovering/Resolving]

NARRATIVE: CASE EVENT DATE: 20230421
